FAERS Safety Report 8484508-8 (Version None)
Quarter: 2012Q3

REPORT INFORMATION
  Report Type: 
  Country: None (occurrence: None)
  Receive Date: 20120703
  Receipt Date: 20120628
  Transmission Date: 20120928
  Serious: Yes (Other)
  Sender: FDA-Public Use
  Company Number: BR-PFIZER INC-2012155791

PATIENT
  Age: 44 Year
  Sex: Female
  Weight: 66 kg

DRUGS (3)
  1. CICLOPRIMOGYNA [Concomitant]
     Indication: HORMONE REPLACEMENT THERAPY
     Dosage: UNK
     Dates: start: 19920101
  2. VENLAFAXINE HCL [Suspect]
     Dosage: UNK
  3. PRISTIQ [Suspect]
     Indication: MENTAL DISORDER
     Dosage: 50 MG, ONE TABLET DAILY
     Route: 048
     Dates: start: 20120620

REACTIONS (2)
  - SWELLING [None]
  - SWELLING FACE [None]
